FAERS Safety Report 13880634 (Version 2)
Quarter: 2017Q3

REPORT INFORMATION
  Report Type: Spontaneous
  Country: US (occurrence: US)
  Receive Date: 20170818
  Receipt Date: 20170822
  Transmission Date: 20171127
  Serious: Yes (Hospitalization, Other)
  Sender: FDA-Public Use
  Company Number: US-PFIZER INC-2017355437

PATIENT
  Age: 50 Year
  Sex: Female

DRUGS (4)
  1. FENTANYL. [Concomitant]
     Active Substance: FENTANYL
     Indication: PAIN
  2. GABAPENTIN. [Suspect]
     Active Substance: GABAPENTIN
     Indication: PAIN
     Dosage: 650 MG, 3X/DAY
  3. FENFLURAMINE [Concomitant]
     Active Substance: FENFLURAMINE
  4. OXYCONTIN [Concomitant]
     Active Substance: OXYCODONE HYDROCHLORIDE

REACTIONS (11)
  - Sepsis [Unknown]
  - Spinal fracture [Unknown]
  - Product use in unapproved indication [Unknown]
  - Osteomyelitis [Unknown]
  - Wound secretion [Unknown]
  - Pain in jaw [Unknown]
  - Diabetes mellitus [Unknown]
  - Ameloblastoma [Unknown]
  - Intervertebral disc protrusion [Unknown]
  - Swelling face [Unknown]
  - Neck mass [Unknown]
